APPROVED DRUG PRODUCT: DASETTA 7/7/7
Active Ingredient: ETHINYL ESTRADIOL; NORETHINDRONE
Strength: 0.035MG,0.035MG,0.035MG;0.5MG,0.75MG,1MG
Dosage Form/Route: TABLET;ORAL-28
Application: A090946 | Product #001 | TE Code: AB
Applicant: NOVAST LABORATORIES LTD
Approved: Dec 22, 2011 | RLD: No | RS: Yes | Type: RX